FAERS Safety Report 12706198 (Version 2)
Quarter: 2016Q3

REPORT INFORMATION
  Report Type: Spontaneous
  Country: US (occurrence: US)
  Receive Date: 20160901
  Receipt Date: 20160901
  Transmission Date: 20161109
  Serious: No
  Sender: FDA-Public Use
  Company Number: US-JAZZ-2016-US-007908

PATIENT
  Sex: Female

DRUGS (19)
  1. MODAFINIL. [Concomitant]
     Active Substance: MODAFINIL
  2. PROBIOTIC ACIDOPHILUS [Concomitant]
     Active Substance: LACTOBACILLUS ACIDOPHILUS
  3. PROGESTERONE. [Concomitant]
     Active Substance: PROGESTERONE
  4. LYRICA [Concomitant]
     Active Substance: PREGABALIN
  5. VITAMIN D3 [Concomitant]
     Active Substance: CHOLECALCIFEROL
  6. METHYLPHENIDATE LA [Concomitant]
  7. XYREM [Suspect]
     Active Substance: SODIUM OXYBATE
     Indication: CATAPLEXY
     Dosage: DOSE ADJUSTMENTS
     Route: 048
  8. IBUPROFEN. [Concomitant]
     Active Substance: IBUPROFEN
  9. ICAR-C PLUS [Concomitant]
  10. CYCLOBENZAPRINE ER [Concomitant]
  11. XYREM [Suspect]
     Active Substance: SODIUM OXYBATE
     Indication: NARCOLEPSY
     Dosage: 2.25 G, BID
     Route: 048
     Dates: start: 200609, end: 2006
  12. XYREM [Suspect]
     Active Substance: SODIUM OXYBATE
     Dosage: 3.5 G, BID
     Route: 048
     Dates: start: 200903
  13. METHYLPHENIDATE. [Concomitant]
     Active Substance: METHYLPHENIDATE
  14. TRAMADOL HCL [Concomitant]
     Active Substance: TRAMADOL HYDROCHLORIDE
  15. DULOXETINE HYDROCHLORIDE. [Concomitant]
     Active Substance: DULOXETINE HYDROCHLORIDE
  16. LANSOPRAZOLE DR [Concomitant]
  17. DHEA [Concomitant]
     Active Substance: PRASTERONE
  18. FLONASE ALLERGY RLF [Concomitant]
  19. VERAMYST [Concomitant]
     Active Substance: FLUTICASONE FUROATE

REACTIONS (3)
  - Therapeutic response unexpected [Unknown]
  - Limb injury [Unknown]
  - Pre-existing condition improved [Unknown]

NARRATIVE: CASE EVENT DATE: 2015
